FAERS Safety Report 19004214 (Version 2)
Quarter: 2022Q4

REPORT INFORMATION
  Report Type: Spontaneous
  Country: CA (occurrence: CA)
  Receive Date: 20210313
  Receipt Date: 20221221
  Transmission Date: 20230113
  Serious: Yes (Other)
  Sender: FDA-Public Use
  Company Number: CA-ORGANON-O2103CAN001444

PATIENT
  Sex: Female

DRUGS (2)
  1. FOLLITROPIN BETA [Suspect]
     Active Substance: FOLLITROPIN BETA
     Indication: Product used for unknown indication
     Dosage: UNK
     Route: 065
  2. FOLLITROPIN BETA [Suspect]
     Active Substance: FOLLITROPIN BETA
     Indication: Product used for unknown indication
     Dosage: UNK; SOLUTION SUBCUTANEOUS
     Route: 065

REACTIONS (2)
  - Coronavirus infection [Unknown]
  - Coronavirus test positive [Unknown]
